FAERS Safety Report 17723844 (Version 1)
Quarter: 2020Q2

REPORT INFORMATION
  Report Type: Spontaneous
  Country: US (occurrence: US)
  Receive Date: 20200429
  Receipt Date: 20200429
  Transmission Date: 20200714
  Serious: No
  Sender: FDA-Public Use
  Company Number: US-SA-2020SA109780

PATIENT
  Age: 62 Year
  Sex: Male

DRUGS (1)
  1. ALLEGRA ALLERGY [Suspect]
     Active Substance: FEXOFENADINE HYDROCHLORIDE
     Dosage: 1 DF, QD (1 PILL 7 IN THE MORNING)
     Route: 065

REACTIONS (3)
  - Sneezing [Unknown]
  - Cough [Unknown]
  - Therapeutic product effect decreased [Unknown]
